FAERS Safety Report 7299960-3 (Version None)
Quarter: 2011Q1

REPORT INFORMATION
  Report Type: 
  Country: None (occurrence: None)
  Receive Date: 20110217
  Receipt Date: 20110210
  Transmission Date: 20110831
  Serious: Yes (Death)
  Sender: FDA-Public Use
  Company Number: SI-BAXTER-2011BH003518

PATIENT
  Age: 66 Year
  Sex: Female

DRUGS (3)
  1. SEVOFLURANE [Suspect]
     Indication: ANAESTHESIA
     Route: 055
  2. RAMIPRIL [Concomitant]
     Indication: HYPERTENSION
     Route: 065
  3. METOPROLOL TARTRATE [Concomitant]
     Indication: HYPERTENSION
     Route: 065

REACTIONS (4)
  - CARDIAC FAILURE [None]
  - RENAL FAILURE [None]
  - SUBACUTE HEPATIC FAILURE [None]
  - RESPIRATORY FAILURE [None]
